FAERS Safety Report 24566314 (Version 3)
Quarter: 2025Q2

REPORT INFORMATION
  Report Type: Spontaneous
  Country: JP (occurrence: JP)
  Receive Date: 20241030
  Receipt Date: 20250419
  Transmission Date: 20250717
  Serious: Yes (Death, Hospitalization, Other)
  Sender: UNITED THERAPEUTICS
  Company Number: JP-UNITED THERAPEUTICS-UNT-2024-008934

PATIENT
  Age: 55 Year
  Sex: Female

DRUGS (2)
  1. TYVASO [Suspect]
     Active Substance: TREPROSTINIL
     Indication: Lymphangioleiomyomatosis
     Dosage: 24 ?G, QID
     Dates: start: 20240314, end: 2024
  2. TYVASO [Suspect]
     Active Substance: TREPROSTINIL
     Indication: Pulmonary hypertension

REACTIONS (6)
  - Lymphangioleiomyomatosis [Fatal]
  - Dyspnoea [Fatal]
  - Condition aggravated [Fatal]
  - Off label use [Fatal]
  - Oedema [Unknown]
  - Nasal congestion [Unknown]

NARRATIVE: CASE EVENT DATE: 20240101
